FAERS Safety Report 5675092-2 (Version None)
Quarter: 2008Q1

REPORT INFORMATION
  Report Type: 
  Country: None (occurrence: None)
  Receive Date: 20080320
  Receipt Date: 20080317
  Transmission Date: 20080703
  Serious: Yes (Hospitalization)
  Sender: FDA-Public Use
  Company Number: JP-BRISTOL-MYERS SQUIBB COMPANY-14120570

PATIENT
  Age: 74 Year
  Sex: Female

DRUGS (3)
  1. TAXOL [Suspect]
     Indication: NON-SMALL CELL LUNG CANCER
     Route: 041
  2. DOCETAXEL [Suspect]
     Indication: NON-SMALL CELL LUNG CANCER
  3. TS-1 [Suspect]
     Indication: NON-SMALL CELL LUNG CANCER

REACTIONS (1)
  - RHABDOMYOLYSIS [None]
